FAERS Safety Report 21016426 (Version 1)
Quarter: 2022Q2

REPORT INFORMATION
  Report Type: Spontaneous
  Country: US (occurrence: US)
  Receive Date: 20220628
  Receipt Date: 20220628
  Transmission Date: 20220721
  Serious: Yes (Other)
  Sender: FDA-Public Use
  Company Number: US-MACLEODS PHARMACEUTICALS US LTD-MAC2022036218

PATIENT

DRUGS (2)
  1. TRIAMCINOLONE [Suspect]
     Active Substance: TRIAMCINOLONE
     Indication: Product used for unknown indication
     Dosage: 2 MILLILITER (TOTAL OF 80 MG OF TRIAMCINOLONE) (7 MILLILITERS (ML) OF TRIAMCINOLONE/ROPIVACAINE MIXT
     Route: 014
  2. ROPIVACAINE [Concomitant]
     Active Substance: ROPIVACAINE
     Indication: Product used for unknown indication
     Dosage: 5 MILLILITER, SINGLE (7 MILLILITERS (ML) OF TRIAMCINOLONE/ROPIVACAINE MIXTURE)
     Route: 014

REACTIONS (1)
  - Myopathy [Recovered/Resolved]
